FAERS Safety Report 6809713-5 (Version None)
Quarter: 2010Q2

REPORT INFORMATION
  Report Type: 
  Country: None (occurrence: None)
  Receive Date: 20100630
  Receipt Date: 20100618
  Transmission Date: 20101027
  Serious: Yes (Other)
  Sender: FDA-Public Use
  Company Number: JP-PFIZER INC-2010076631

PATIENT
  Age: 77 Year
  Sex: Male

DRUGS (9)
  1. SULPERAZON [Suspect]
     Indication: INFECTION
     Dosage: 2 G DAILY
     Route: 042
     Dates: start: 20100604, end: 20100607
  2. NU LOTAN [Concomitant]
  3. PANALDINE [Concomitant]
  4. ALLOPURINOL [Concomitant]
  5. BEZATOL [Concomitant]
  6. PERSANTINE [Concomitant]
  7. HARNAL [Concomitant]
  8. MINIPRESS [Concomitant]
  9. FLUITRAN [Concomitant]

REACTIONS (2)
  - LOSS OF CONSCIOUSNESS [None]
  - RASH [None]
